FAERS Safety Report 16041769 (Version 1)
Quarter: 2019Q1

REPORT INFORMATION
  Report Type: Spontaneous
  Country: US (occurrence: US)
  Receive Date: 20190306
  Receipt Date: 20190306
  Transmission Date: 20190418
  Serious: Yes (Other)
  Sender: FDA-Public Use
  Company Number: US-AKORN PHARMACEUTICALS-2018AKN00284

PATIENT
  Sex: Female
  Weight: 54.88 kg

DRUGS (2)
  1. MYORISAN [Suspect]
     Active Substance: ISOTRETINOIN
     Indication: ACNE CYSTIC
     Dosage: UNK
     Dates: start: 20171113, end: 201802
  2. MYORISAN [Suspect]
     Active Substance: ISOTRETINOIN
     Indication: ACNE CYSTIC
     Dosage: UNK
     Dates: start: 20171013, end: 201711

REACTIONS (2)
  - Papilloedema [Recovering/Resolving]
  - Intracranial pressure increased [Recovering/Resolving]

NARRATIVE: CASE EVENT DATE: 2018
